FAERS Safety Report 7237542-X (Version None)
Quarter: 2011Q1

REPORT INFORMATION
  Report Type: 
  Country: None (occurrence: None)
  Receive Date: 20110121
  Receipt Date: 20110113
  Transmission Date: 20110831
  Serious: No
  Sender: FDA-Public Use
  Company Number: US-B.I. PHARMACEUTICALS,INC./RIDGEFIELD-2011-BP-01236BP

PATIENT
  Sex: Male

DRUGS (5)
  1. TOPROL-XL [Concomitant]
     Indication: HYPERTENSION
  2. LASIX [Concomitant]
     Indication: OEDEMA PERIPHERAL
  3. PRADAXA [Suspect]
     Indication: ATRIAL FIBRILLATION
     Dosage: 300 MG
     Route: 048
     Dates: start: 20110101
  4. CYMBALTA [Concomitant]
     Indication: NEUROPATHY PERIPHERAL
  5. ACEOM [Concomitant]
     Indication: NEUROPATHY PERIPHERAL

REACTIONS (1)
  - SKIN DISCOLOURATION [None]
